FAERS Safety Report 16803572 (Version 1)
Quarter: 2019Q3

REPORT INFORMATION
  Report Type: Spontaneous
  Country: US (occurrence: US)
  Receive Date: 20190913
  Receipt Date: 20190913
  Transmission Date: 20191005
  Serious: Yes (Other)
  Sender: FDA-Public Use
  Company Number: US-ZYDUS-040530

PATIENT
  Age: 53 Year
  Sex: Male

DRUGS (1)
  1. WARFARIN [Suspect]
     Active Substance: WARFARIN
     Indication: ANTICOAGULANT THERAPY
     Route: 065

REACTIONS (4)
  - Vascular calcification [Unknown]
  - Calciphylaxis [Unknown]
  - Penile plaque [Unknown]
  - Eschar [Unknown]
